FAERS Safety Report 25118592 (Version 1)
Quarter: 2025Q1

REPORT INFORMATION
  Report Type: Report from Study
  Country: GB (occurrence: GB)
  Receive Date: 20250325
  Receipt Date: 20250325
  Transmission Date: 20250409
  Serious: Yes (Other)
  Sender: ABBVIE
  Company Number: GB-ABBVIE-6190970

PATIENT
  Sex: Female

DRUGS (1)
  1. SKYRIZI [Suspect]
     Active Substance: RISANKIZUMAB-RZAA
     Indication: Crohn^s disease
     Dosage: SKYRIZI 360MG/2.4ML SOLUTION FOR INJECTION CARTRIDGE ON-BODY DEVICE ?DOSE 1.00 EA
     Route: 058

REACTIONS (3)
  - Cataract [Unknown]
  - Diarrhoea [Unknown]
  - Blood magnesium decreased [Unknown]
